FAERS Safety Report 4546818-6 (Version None)
Quarter: 2005Q1

REPORT INFORMATION
  Report Type: 
  Country: None (occurrence: None)
  Receive Date: 20050105
  Receipt Date: 20041227
  Transmission Date: 20050727
  Serious: Yes (Hospitalization)
  Sender: FDA-Public Use
  Company Number: 2004120519

PATIENT
  Age: 80 Year
  Sex: Female

DRUGS (19)
  1. SPIRONOLACTON (SPIRONOLACTONE) [Suspect]
     Indication: ILL-DEFINED DISORDER
     Dosage: 25 MG (DAILY), ORAL
     Route: 048
  2. FUROSEMIDE (FUROSEMIDE) [Suspect]
     Indication: ILL-DEFINED DISORDER
     Dosage: 40 MG (40 MG, DAILY), ORAL
     Route: 048
  3. LOSARTAN (LOSARTAN) [Suspect]
     Indication: ILL-DEFINED DISORDER
     Dosage: 50 MG (50 MG, DAILY), ORAL
     Route: 048
  4. MEPRONIZINE (ACEPROMETAZINE, MEPROBAMATE) [Concomitant]
  5. NITROGLYCERIN [Concomitant]
  6. AMIODARONE HCL [Concomitant]
  7. NICORANDIL (NICORANDIL) [Concomitant]
  8. FLUINDIONE (FLUINDIONE) [Concomitant]
  9. ATORVASTATIN CALCIUM [Concomitant]
  10. BROMAZEPAM (BROMAZEPAM) [Concomitant]
  11. DUOVENT (FENOTEROL HYDROBROMIDE, IPRATROPIUM BROMIDE) [Concomitant]
  12. SULBUTAMOL (SALBUTAMOL) [Concomitant]
  13. CYSTEINE B6 BAILLEUL (CYSTINE, PYRIDOXINE HYDROHCLORIDE) [Concomitant]
  14. CLOMIPRAMINE HCL [Concomitant]
  15. TRAMADOL HCL [Concomitant]
  16. ACETAMINOPHEN AND TRAMADOL HCL [Concomitant]
  17. OMEPRAZOE (OMEPRAZOLE) [Concomitant]
  18. FERROUS SULFATE TAB [Concomitant]
  19. PREDNISOLONE SODIUM SULFOBENZOATE (PREDNISOLONE SODIUM SULFOBENZOATE) [Concomitant]

REACTIONS (19)
  - ANAEMIA [None]
  - ATRIAL FIBRILLATION [None]
  - BLOOD UREA INCREASED [None]
  - CARDIOMEGALY [None]
  - CHEST X-RAY ABNORMAL [None]
  - CHRONIC RESPIRATORY DISEASE [None]
  - CONFUSIONAL STATE [None]
  - DIZZINESS [None]
  - FALL [None]
  - HEAD INJURY [None]
  - INFLAMMATION [None]
  - LOSS OF CONSCIOUSNESS [None]
  - ORTHOSTATIC HYPOTENSION [None]
  - PLEURAL EFFUSION [None]
  - RENAL DISORDER [None]
  - RHABDOMYOLYSIS [None]
  - SELF-MEDICATION [None]
  - THROMBOCYTOPENIA [None]
  - VISION BLURRED [None]
